FAERS Safety Report 9969715 (Version 1)
Quarter: 2014Q1

REPORT INFORMATION
  Report Type: Spontaneous
  Country: US (occurrence: None)
  Receive Date: 20140304
  Receipt Date: 20140304
  Transmission Date: 20141002
  Serious: Yes (Other)
  Sender: FDA-Public Use
  Company Number: None

PATIENT
  Age: 31 Year
  Sex: Female
  Weight: 72.58 kg

DRUGS (1)
  1. NEXPLANON [Suspect]
     Dates: start: 20131014, end: 20140117

REACTIONS (5)
  - Haemorrhage [None]
  - Thrombosis [None]
  - Pain [None]
  - Dyspnoea [None]
  - Oropharyngeal pain [None]
